FAERS Safety Report 9486566 (Version 1)
Quarter: 2013Q3

REPORT INFORMATION
  Report Type: Spontaneous
  Country: US (occurrence: None)
  Receive Date: 20130827
  Receipt Date: 20130827
  Transmission Date: 20140515
  Serious: Yes (Life-Threatening)
  Sender: FDA-Public Use
  Company Number: None

PATIENT
  Age: 62 Year
  Sex: Male
  Weight: 136.08 kg

DRUGS (15)
  1. CYMBALTA 30MG LILLY [Suspect]
     Indication: BACK PAIN
     Route: 048
  2. CYMBALTA 30MG LILLY [Suspect]
     Indication: PAIN IN EXTREMITY
     Route: 048
  3. ASPIRIN [Concomitant]
  4. FLOWMAX [Concomitant]
  5. NEXIUM [Concomitant]
  6. LAMSEAL [Concomitant]
  7. POT CITRATE [Concomitant]
  8. ENALAPRIL [Concomitant]
  9. METOPROL [Concomitant]
  10. VYTORIN [Concomitant]
  11. FINASTERIDE [Concomitant]
  12. TERBINAFINE HCL [Concomitant]
  13. CYCKIBENZAPR [Concomitant]
  14. SYMBICOT [Concomitant]
  15. VESICARE [Concomitant]

REACTIONS (3)
  - Depression [None]
  - Crying [None]
  - Negative thoughts [None]
